FAERS Safety Report 6738009-5 (Version None)
Quarter: 2010Q2

REPORT INFORMATION
  Report Type: 
  Country: None (occurrence: None)
  Receive Date: 20100520
  Receipt Date: 20100505
  Transmission Date: 20101027
  Serious: Yes (Death)
  Sender: FDA-Public Use
  Company Number: 584728

PATIENT

DRUGS (8)
  1. CARBOPLATIN [Suspect]
     Indication: GERM CELL CANCER
  2. ETOPOSIDE [Suspect]
     Indication: GERM CELL CANCER
     Dosage: 250 MG/M 2 MILLIGRAM (S) /SQ. METER.
     Route: 058
  3. IFOSFAMIDE [Suspect]
     Indication: GERM CELL CANCER
  4. THIOTEPA [Suspect]
     Dosage: 300 MG/M2 MILLIGRAM (S)/ SQ. METER.
     Route: 058
  5. ACYCLOVIR SODIUM [Concomitant]
  6. FLUCONAZOLE [Concomitant]
  7. PENTAMIDINE ISETHIONATE [Concomitant]
  8. (GRANULOCYTE COLONY STIMULATING FACTOR) [Concomitant]

REACTIONS (7)
  - HAEMATOTOXICITY [None]
  - MUCOSAL INFLAMMATION [None]
  - MULTI-ORGAN FAILURE [None]
  - NEUTROPENIA [None]
  - PYREXIA [None]
  - SEPSIS [None]
  - VENOOCCLUSIVE DISEASE [None]
